FAERS Safety Report 15601136 (Version 2)
Quarter: 2018Q4

REPORT INFORMATION
  Report Type: Spontaneous
  Country: US (occurrence: US)
  Receive Date: 20181109
  Receipt Date: 20181115
  Transmission Date: 20190205
  Serious: Yes (Other)
  Sender: FDA-Public Use
  Company Number: US-009507513-1811USA003509

PATIENT
  Age: 38 Year
  Sex: Female

DRUGS (7)
  1. MONONESSA [Concomitant]
     Active Substance: ETHINYL ESTRADIOL\NORGESTIMATE
     Dosage: UNK
  2. GANIRELIX ACETATE INJECTION [Suspect]
     Active Substance: GANIRELIX ACETATE
     Indication: INFERTILITY FEMALE
     Dosage: UNK, STRENGTH: 250 MICROGRAM
     Dates: start: 20180425
  3. MENOPUR [Concomitant]
     Active Substance: FOLLITROPIN\LUTEINIZING HORMONE
  4. AZITHROMYCIN ANHYDROUS. [Concomitant]
     Active Substance: AZITHROMYCIN ANHYDROUS
  5. FOLLISTIM AQ [Suspect]
     Active Substance: FOLLITROPIN
     Indication: INFERTILITY FEMALE
     Dosage: 300 U NIGHTLY AFTER 8:30 PM WHEN INSTRUCTED, STRENGTH: 600 IU/0.72 ML
     Route: 058
     Dates: start: 20180425
  6. OVIDREL [Concomitant]
     Active Substance: CHORIOGONADOTROPIN ALFA
  7. CABERGOLINE. [Concomitant]
     Active Substance: CABERGOLINE
     Dosage: UNK

REACTIONS (1)
  - Ovarian hyperstimulation syndrome [Unknown]

NARRATIVE: CASE EVENT DATE: 201805
